FAERS Safety Report 9055103 (Version 1)
Quarter: 2013Q1

REPORT INFORMATION
  Report Type: Spontaneous
  Country: AR (occurrence: AR)
  Receive Date: 20130206
  Receipt Date: 20130206
  Transmission Date: 20140127
  Serious: Yes (Other)
  Sender: FDA-Public Use
  Company Number: PHHY2013AR009946

PATIENT
  Sex: Male

DRUGS (1)
  1. LAPENAX [Suspect]
     Indication: SCHIZOPHRENIA
     Dosage: 150 MG DAILY
     Route: 048
     Dates: start: 201109

REACTIONS (7)
  - Petit mal epilepsy [Unknown]
  - Amnesia [Unknown]
  - Confusional state [Unknown]
  - Blister [Unknown]
  - Memory impairment [Unknown]
  - Major depression [Unknown]
  - Myalgia [Unknown]
